FAERS Safety Report 14661176 (Version 1)
Quarter: 2018Q1

REPORT INFORMATION
  Report Type: Spontaneous
  Country: US (occurrence: US)
  Receive Date: 20180320
  Receipt Date: 20180320
  Transmission Date: 20180509
  Serious: Yes (Other)
  Sender: FDA-Public Use
  Company Number: US-SUPERNUS PHARMACEUTICALS, INC.-2018SUP00072

PATIENT
  Age: 75 Year
  Sex: Female
  Weight: 72.56 kg

DRUGS (5)
  1. PANTOPRAZOLE [Concomitant]
     Active Substance: PANTOPRAZOLE
  2. METFORMIN [Concomitant]
     Active Substance: METFORMIN HYDROCHLORIDE
  3. WARFARIN [Suspect]
     Active Substance: WARFARIN
     Dosage: UNK
  4. TROKENDI XR [Suspect]
     Active Substance: TOPIRAMATE
     Indication: HEADACHE
     Dosage: 200 MG, 1X/DAY
     Route: 048
  5. SOTALOL. [Concomitant]
     Active Substance: SOTALOL

REACTIONS (4)
  - Gait disturbance [Recovered/Resolved]
  - Blood disorder [Recovered/Resolved]
  - Vascular injury [Recovered/Resolved]
  - Off label use [Not Recovered/Not Resolved]

NARRATIVE: CASE EVENT DATE: 2017
